FAERS Safety Report 18605084 (Version 2)
Quarter: 2022Q3

REPORT INFORMATION
  Report Type: Spontaneous
  Country: CO (occurrence: CO)
  Receive Date: 20201211
  Receipt Date: 20220713
  Transmission Date: 20221026
  Serious: Yes (Hospitalization, Other)
  Sender: FDA-Public Use
  Company Number: CO-GLAXOSMITHKLINE-CO2020AMR244163

PATIENT

DRUGS (7)
  1. EPOPROSTENOL [Suspect]
     Active Substance: EPOPROSTENOL
     Indication: Pulmonary arterial hypertension
     Dosage: UNK, 0.002UG/KG
     Dates: start: 20201126
  2. REMODULIN [Suspect]
     Active Substance: TREPROSTINIL
     Indication: Pulmonary arterial hypertension
     Dosage: UNK, 0.011UG/KG
     Route: 058
     Dates: start: 20200527
  3. REMODULIN [Suspect]
     Active Substance: TREPROSTINIL
     Indication: Pulmonary hypertension
     Dosage: UNK, 0.009UG/KG
     Route: 058
     Dates: start: 20201127
  4. FUROSEMIDE [Concomitant]
     Active Substance: FUROSEMIDE
     Indication: Product used for unknown indication
     Dosage: UNK
     Dates: start: 20200515
  5. WARFARIN [Concomitant]
     Active Substance: WARFARIN
     Indication: Product used for unknown indication
     Dosage: UNK
     Dates: start: 20160113
  6. BOSENTAN [Concomitant]
     Active Substance: BOSENTAN
     Indication: Product used for unknown indication
     Dosage: UNK
     Dates: start: 20150112
  7. RIOCIGUAT [Concomitant]
     Active Substance: RIOCIGUAT
     Indication: Product used for unknown indication
     Dosage: UNK
     Dates: start: 20160113

REACTIONS (5)
  - Palpitations [Unknown]
  - Dyspnoea [Unknown]
  - Fatigue [Unknown]
  - Pulmonary hypertension [Unknown]
  - Condition aggravated [Unknown]

NARRATIVE: CASE EVENT DATE: 20021126
